FAERS Safety Report 5490100-X (Version None)
Quarter: 2007Q4

REPORT INFORMATION
  Report Type: 
  Country: None (occurrence: None)
  Receive Date: 20071016
  Receipt Date: 20071010
  Transmission Date: 20080405
  Serious: Yes (Hospitalization)
  Sender: FDA-Public Use
  Company Number: 2007BI019578

PATIENT
  Age: 55 Year
  Sex: Female

DRUGS (2)
  1. NATALIZUMAB [Suspect]
     Indication: MULTIPLE SCLEROSIS
     Dosage: 300 MG; QM; IV
     Route: 042
     Dates: start: 20070329
  2. AVONEX [Concomitant]

REACTIONS (3)
  - KLEBSIELLA INFECTION [None]
  - URINARY TRACT INFECTION [None]
  - URINARY TRACT INFECTION STAPHYLOCOCCAL [None]
